FAERS Safety Report 10149829 (Version 2)
Quarter: 2014Q2

REPORT INFORMATION
  Report Type: Spontaneous
  Country: DE (occurrence: DE)
  Receive Date: 20140502
  Receipt Date: 20140625
  Transmission Date: 20141212
  Serious: Yes (Other)
  Sender: FDA-Public Use
  Company Number: DE-ELI_LILLY_AND_COMPANY-DE201404008338

PATIENT
  Age: 78 Year
  Sex: Male
  Weight: 78 kg

DRUGS (4)
  1. EFIENT [Suspect]
     Indication: ACUTE CORONARY SYNDROME
     Dosage: 10 MG, QD
     Route: 048
     Dates: start: 20131219
  2. EFIENT [Suspect]
     Indication: ACUTE MYOCARDIAL INFARCTION
  3. ASS [Suspect]
     Indication: ACUTE CORONARY SYNDROME
     Dosage: 100 MG, QD
     Dates: start: 2006
  4. MICARDIS PLUS [Concomitant]
     Indication: HYPERTENSION
     Dosage: 80 MG, QD
     Route: 048
     Dates: start: 2008

REACTIONS (2)
  - Iron deficiency anaemia [Recovering/Resolving]
  - Gastrointestinal haemorrhage [Recovering/Resolving]
